FAERS Safety Report 25952969 (Version 2)
Quarter: 2025Q4

REPORT INFORMATION
  Report Type: Spontaneous
  Country: US (occurrence: US)
  Receive Date: 20251023
  Receipt Date: 20251210
  Transmission Date: 20260118
  Serious: Yes (Life-Threatening, Hospitalization)
  Sender: MYLAN
  Company Number: US-MYLANLABS-2025M1088763

PATIENT
  Age: 3 Year
  Sex: Male
  Weight: 17 kg

DRUGS (6)
  1. DOXORUBICIN [Suspect]
     Active Substance: DOXORUBICIN
     Indication: Hepatocellular carcinoma
     Dosage: UNK, CYCLE (RECEIVED 4 CYCLES BEFORE LACK OF EFFICACY WAS NOTED)
  2. CISPLATIN [Suspect]
     Active Substance: CISPLATIN
     Indication: Hepatocellular carcinoma
     Dosage: UNK, CYCLE, RECEIVED 4 CYCLES BEFORE LACK OF EFFICACY WAS NOTED
  3. FLUOROURACIL [Suspect]
     Active Substance: FLUOROURACIL
     Indication: Hepatocellular carcinoma
     Dosage: UNK, CYCLE, RECEIVED 4 CYCLES BEFORE LACK OF EFFICACY WAS NOTED
  4. VINCRISTINE [Suspect]
     Active Substance: VINCRISTINE
     Indication: Hepatocellular carcinoma
     Dosage: UNK, CYCLE, RECEIVED 4 CYCLES BEFORE LACK OF EFFICACY WAS NOTED
  5. YTTRIUM CHLORIDE Y-90 [Suspect]
     Active Substance: YTTRIUM CHLORIDE Y-90
     Indication: Hepatocellular carcinoma
     Dosage: 30 MILLICURIE, 30 MCI OF LOCAL RADIATION WAS ADMINISTERED INTO THE RIGHT
  6. YTTRIUM CHLORIDE Y-90 [Suspect]
     Active Substance: YTTRIUM CHLORIDE Y-90
     Dosage: 6.13 MILLICURIE, SIX WEEKS LATER, ADDITIONAL YTTRIUM-90 TO THE LEFT HEPATIC ARTERY WITH

REACTIONS (2)
  - Liver disorder [Recovering/Resolving]
  - Therapy non-responder [Unknown]
